FAERS Safety Report 15402747 (Version 1)
Quarter: 2018Q3

REPORT INFORMATION
  Report Type: Spontaneous
  Country: US (occurrence: US)
  Receive Date: 20180917
  Receipt Date: 20180917
  Transmission Date: 20181010
  Serious: Yes (Hospitalization)
  Sender: FDA-Public Use
  Company Number: None

PATIENT
  Age: 55 Year
  Sex: Male

DRUGS (22)
  1. MYCOPHENOLATE [Suspect]
     Active Substance: MYCOPHENOLIC ACID
     Indication: LIVER TRANSPLANT
     Route: 048
     Dates: start: 20180302
  2. ALPRAZOLAM. [Concomitant]
     Active Substance: ALPRAZOLAM
  3. ATORVASTATIN [Concomitant]
     Active Substance: ATORVASTATIN
  4. MIDODRINE [Concomitant]
     Active Substance: MIDODRINE
  5. NOVOLOG [Concomitant]
     Active Substance: INSULIN ASPART
  6. CYMBALTA [Concomitant]
     Active Substance: DULOXETINE HYDROCHLORIDE
  7. DULOXETINE. [Concomitant]
     Active Substance: DULOXETINE
  8. DIGOX [Concomitant]
     Active Substance: DIGOXIN
  9. POLYETH GLYC POW [Concomitant]
  10. RENVELA [Concomitant]
     Active Substance: SEVELAMER CARBONATE
  11. WARFARIN [Concomitant]
     Active Substance: WARFARIN
  12. TACROLIMUS. [Suspect]
     Active Substance: TACROLIMUS
     Indication: LIVER TRANSPLANT
     Route: 048
     Dates: start: 20180724
  13. DOK [Concomitant]
     Active Substance: DOCUSATE SODIUM
  14. LANTUS [Concomitant]
     Active Substance: INSULIN GLARGINE
  15. STOOL SOFTNR [Concomitant]
  16. ZOCOR [Concomitant]
     Active Substance: SIMVASTATIN
  17. BISACODYL. [Concomitant]
     Active Substance: BISACODYL
  18. LASIX [Concomitant]
     Active Substance: FUROSEMIDE
  19. MULTIVIATMIN CHW ADULT [Concomitant]
  20. PANTOPRAZOLE [Concomitant]
     Active Substance: PANTOPRAZOLE
  21. GABAPENTIN. [Concomitant]
     Active Substance: GABAPENTIN
  22. HALOPERIDOL. [Concomitant]
     Active Substance: HALOPERIDOL

REACTIONS (2)
  - Cardiac failure [None]
  - Fluid overload [None]

NARRATIVE: CASE EVENT DATE: 20180827
